FAERS Safety Report 5253246-7 (Version None)
Quarter: 2007Q1

REPORT INFORMATION
  Report Type: 
  Country: None (occurrence: None)
  Receive Date: 20070301
  Receipt Date: 20070221
  Transmission Date: 20070707
  Serious: Yes (Hospitalization)
  Sender: FDA-Public Use
  Company Number: US-JNJFOC-20070204949

PATIENT
  Sex: Female

DRUGS (1)
  1. DOXIL [Suspect]
     Indication: BREAST CANCER METASTATIC
     Route: 042

REACTIONS (2)
  - COUGH [None]
  - PNEUMONITIS [None]
